FAERS Safety Report 4407138-3 (Version None)
Quarter: 2004Q3

REPORT INFORMATION
  Report Type: 
  Country: None (occurrence: None)
  Receive Date: 20040723
  Receipt Date: 20040723
  Transmission Date: 20050211
  Serious: Yes (Other)
  Sender: FDA-Public Use
  Company Number: None

PATIENT
  Age: 84 Year
  Sex: Male
  Weight: 99.3 kg

DRUGS (12)
  1. TERAZOSIN HCL [Suspect]
  2. ISOSORBIDE DINITRATE [Concomitant]
  3. FUROSEMIDE [Concomitant]
  4. OMEPRAZOLE [Concomitant]
  5. NAPROXEN [Concomitant]
  6. POTASSIUM CHLORIDE [Concomitant]
  7. TERAZOSIN HCL [Concomitant]
  8. ACCU-CHEK COMFORT CURVE-H TEST STRIP [Concomitant]
  9. GLYBURIDE [Concomitant]
  10. LANCET [Concomitant]
  11. NITROGLYCERIN [Concomitant]
  12. METOPROLOL TARTRATE [Concomitant]

REACTIONS (2)
  - HYPOTENSION [None]
  - OEDEMA [None]
